FAERS Safety Report 4509831-0 (Version None)
Quarter: 2004Q4

REPORT INFORMATION
  Report Type: 
  Country: None (occurrence: None)
  Receive Date: 20041119
  Receipt Date: 20041028
  Transmission Date: 20050328
  Serious: Yes (Other)
  Sender: FDA-Public Use
  Company Number: USA030229531

PATIENT
  Age: 84 Year
  Sex: Female
  Weight: 59 kg

DRUGS (9)
  1. EVISTA [Suspect]
     Dates: start: 20011218
  2. FORTEO [Suspect]
     Indication: OSTEOPOROSIS
     Dosage: 20 UG/DAY
  3. PROZAC [Suspect]
     Dosage: 20 MG/DAY
  4. PROPOXYPHENE NAPSYLATE W/ ACETAMINOPHEN [Suspect]
  5. ACIPHEX [Concomitant]
  6. CALCIUM [Concomitant]
  7. MULTI-VITAMIN [Concomitant]
  8. ZESTORETIC [Concomitant]
  9. ASPIRIN [Concomitant]

REACTIONS (11)
  - ASTHENIA [None]
  - BRONCHITIS [None]
  - CEREBROVASCULAR ACCIDENT [None]
  - CONDITION AGGRAVATED [None]
  - FLUSHING [None]
  - GLOSSODYNIA [None]
  - HYPOAESTHESIA [None]
  - PARAESTHESIA [None]
  - PHARMACEUTICAL PRODUCT COMPLAINT [None]
  - SPINAL FRACTURE [None]
  - THROAT IRRITATION [None]
